FAERS Safety Report 19260228 (Version 1)
Quarter: 2021Q2

REPORT INFORMATION
  Report Type: Spontaneous
  Country: US (occurrence: US)
  Receive Date: 20210514
  Receipt Date: 20210514
  Transmission Date: 20210717
  Serious: Yes (Other)
  Sender: FDA-Public Use
  Company Number: NVSC2021US108297

PATIENT
  Age: 48 Year
  Sex: Male

DRUGS (4)
  1. RANITIDINE. [Suspect]
     Active Substance: RANITIDINE
     Indication: DYSPEPSIA
     Dosage: 150 MG, QD
     Route: 048
     Dates: start: 200710, end: 201906
  2. RANITIDINE. [Suspect]
     Active Substance: RANITIDINE
     Indication: DYSPEPSIA
     Dosage: 150 MG, QD
     Route: 048
     Dates: start: 200710, end: 201906
  3. RANITIDINE. [Suspect]
     Active Substance: RANITIDINE
     Indication: GASTRINOMA
  4. RANITIDINE. [Suspect]
     Active Substance: RANITIDINE
     Indication: GASTRINOMA

REACTIONS (1)
  - Bladder cancer [Recovering/Resolving]

NARRATIVE: CASE EVENT DATE: 20180201
